FAERS Safety Report 7984457-5 (Version None)
Quarter: 2011Q4

REPORT INFORMATION
  Report Type: 
  Country: None (occurrence: None)
  Receive Date: 20111216
  Receipt Date: 20111207
  Transmission Date: 20120403
  Serious: Yes (Hospitalization)
  Sender: FDA-Public Use
  Company Number: DE-ELI_LILLY_AND_COMPANY-DE201112001648

PATIENT
  Sex: Female

DRUGS (3)
  1. CALCIMAGON                         /00751501/ [Concomitant]
     Dosage: UNK, UNKNOWN
     Route: 065
  2. NOVAMINSULFON [Concomitant]
     Dosage: UNK, UNKNOWN
     Route: 065
  3. FORTEO [Suspect]
     Indication: OSTEOPOROSIS
     Dosage: UNK, QD
     Route: 058
     Dates: start: 20100512

REACTIONS (5)
  - URINARY TRACT INFECTION [None]
  - BIOPSY [None]
  - NASOPHARYNGITIS [None]
  - COUGH [None]
  - EYE INFECTION [None]
